FAERS Safety Report 17751779 (Version 1)
Quarter: 2020Q2

REPORT INFORMATION
  Report Type: Spontaneous
  Country: JP (occurrence: JP)
  Receive Date: 20200506
  Receipt Date: 20200506
  Transmission Date: 20200714
  Serious: Yes (Hospitalization, Other)
  Sender: FDA-Public Use
  Company Number: JP-DENTSPLY-2020SCDP000073

PATIENT
  Age: 3 Month
  Sex: Female
  Weight: 4.66 kg

DRUGS (5)
  1. PHENOBARBITAL. [Concomitant]
     Active Substance: PHENOBARBITAL
     Indication: SEIZURE
     Dosage: 3 MILLIGRAM/KILOGRAM
     Route: 048
  2. VIGABATRIN. [Concomitant]
     Active Substance: VIGABATRIN
     Indication: SEIZURE
     Dosage: UNK
  3. LIDOCAINE HCL [Suspect]
     Active Substance: LIDOCAINE HYDROCHLORIDE
     Indication: SEIZURE
     Dosage: 2 MILLIGRAM/KILOGRAM, CONTINUOUS INTRAVENOUS INFUSION OF LID WAS STARTED (0.3 TO 2.0 MG/KG/HR)
     Route: 042
  4. VITAMIN B6 [Concomitant]
     Active Substance: PYRIDOXINE HYDROCHLORIDE
     Indication: PRODUCT USED FOR UNKNOWN INDICATION
     Dosage: UNK
     Route: 048
  5. LIDOCAINE HCL [Suspect]
     Active Substance: LIDOCAINE HYDROCHLORIDE
     Dosage: 0.3 MILLIGRAM/KILOGRAM, CONTINUOUS INTRAVENOUS INFUSION OF LID WAS STARTED (0.3 TO 2.0 MG/KG/HR)
     Route: 042

REACTIONS (2)
  - Mood altered [Unknown]
  - Hyperuricaemia [None]
